FAERS Safety Report 14929112 (Version 5)
Quarter: 2018Q4

REPORT INFORMATION
  Report Type: Report from Study
  Country: BR (occurrence: BR)
  Receive Date: 20180523
  Receipt Date: 20181129
  Transmission Date: 20190204
  Serious: Yes (Hospitalization, Other)
  Sender: FDA-Public Use
  Company Number: PHHY2018BR004658

PATIENT
  Age: 72 Year
  Sex: Male
  Weight: 88 kg

DRUGS (10)
  1. COSENTYX [Suspect]
     Active Substance: SECUKINUMAB
     Indication: PSORIATIC ARTHROPATHY
     Dosage: 300 MG, QMO (2 PENS OF 150 MG)
     Route: 058
     Dates: start: 20170419
  2. COSENTYX [Suspect]
     Active Substance: SECUKINUMAB
     Indication: ANKYLOSING SPONDYLITIS
     Dosage: UNK
     Route: 058
     Dates: start: 20180418
  3. COSENTYX [Suspect]
     Active Substance: SECUKINUMAB
     Indication: RHEUMATOID ARTHRITIS
     Dosage: UNK
     Route: 058
     Dates: start: 20180518
  4. INSULIN [Concomitant]
     Active Substance: INSULIN NOS
     Indication: PRODUCT USED FOR UNKNOWN INDICATION
     Route: 065
  5. DOLAMIN FLEX [Suspect]
     Active Substance: CLONIXIN\CYCLOBENZAPRINE
     Indication: SPINAL PAIN
     Dosage: UNK
     Route: 065
  6. COSENTYX [Suspect]
     Active Substance: SECUKINUMAB
     Dosage: UNK
     Route: 065
     Dates: start: 20181116
  7. LOSARTAN POTASSIUM. [Suspect]
     Active Substance: LOSARTAN POTASSIUM
     Indication: PRODUCT USED FOR UNKNOWN INDICATION
     Route: 065
  8. DOLAMIN FLEX [Suspect]
     Active Substance: CLONIXIN\CYCLOBENZAPRINE
     Indication: NERVE COMPRESSION
  9. ACETYLSALICYLIC ACID [Concomitant]
     Active Substance: ASPIRIN
     Indication: PRODUCT USED FOR UNKNOWN INDICATION
     Route: 065
  10. COSENTYX [Suspect]
     Active Substance: SECUKINUMAB
     Dosage: UNK
     Route: 065
     Dates: start: 20181016

REACTIONS (26)
  - Paraesthesia [Recovering/Resolving]
  - Spinal pain [Not Recovered/Not Resolved]
  - Bone pain [Not Recovered/Not Resolved]
  - Peripheral swelling [Recovering/Resolving]
  - Vision blurred [Not Recovered/Not Resolved]
  - Discomfort [Not Recovered/Not Resolved]
  - Hypoaesthesia [Not Recovered/Not Resolved]
  - Limb discomfort [Unknown]
  - Renal pain [Unknown]
  - Nerve compression [Not Recovered/Not Resolved]
  - Gait disturbance [Unknown]
  - Diabetes mellitus [Not Recovered/Not Resolved]
  - Optic atrophy [Unknown]
  - Back pain [Recovered/Resolved]
  - Bursitis [Recovering/Resolving]
  - Blood glucose increased [Unknown]
  - Pain in extremity [Recovered/Resolved]
  - Arthralgia [Not Recovered/Not Resolved]
  - Blood pressure abnormal [Unknown]
  - Pain in extremity [Unknown]
  - Drug ineffective [Not Recovered/Not Resolved]
  - Product use in unapproved indication [Unknown]
  - Injection site pain [Unknown]
  - Fluid retention [Not Recovered/Not Resolved]
  - Musculoskeletal stiffness [Recovered/Resolved]
  - Inappropriate schedule of product administration [Unknown]

NARRATIVE: CASE EVENT DATE: 20180515
